FAERS Safety Report 13431242 (Version 1)
Quarter: 2017Q2

REPORT INFORMATION
  Report Type: Spontaneous
  Country: FR (occurrence: FR)
  Receive Date: 20170412
  Receipt Date: 20170412
  Transmission Date: 20170830
  Serious: Yes (Hospitalization, Other)
  Sender: FDA-Public Use
  Company Number: FR-BRISTOL-MYERS SQUIBB COMPANY-BMS-2017-004030

PATIENT
  Sex: Male
  Weight: 80 kg

DRUGS (1)
  1. OPDIVO [Suspect]
     Active Substance: NIVOLUMAB
     Indication: PROCTALGIA
     Dosage: 3 MG/KG, Q2WK
     Route: 041
     Dates: start: 201603, end: 201610

REACTIONS (3)
  - Colitis [Recovering/Resolving]
  - Proctitis [Unknown]
  - Haemorrhoids [Unknown]
